FAERS Safety Report 26005463 (Version 1)
Quarter: 2025Q4

REPORT INFORMATION
  Report Type: Report from Study
  Country: US (occurrence: US)
  Receive Date: 20251106
  Receipt Date: 20251106
  Transmission Date: 20260117
  Serious: Yes (Other)
  Sender: ABBVIE
  Company Number: US-ABBVIE-6491293

PATIENT
  Age: 84 Year
  Sex: Female

DRUGS (1)
  1. SKYRIZI [Suspect]
     Active Substance: RISANKIZUMAB-RZAA
     Indication: Psoriasis
     Route: 058
     Dates: start: 20250225

REACTIONS (5)
  - Haemorrhoids [Unknown]
  - Rectal haemorrhage [Recovering/Resolving]
  - Rheumatoid arthritis [Unknown]
  - Sciatica [Unknown]
  - Dementia [Unknown]

NARRATIVE: CASE EVENT DATE: 20250101
